FAERS Safety Report 13285841 (Version 2)
Quarter: 2017Q1

REPORT INFORMATION
  Report Type: Spontaneous
  Country: ES (occurrence: ES)
  Receive Date: 20170301
  Receipt Date: 20170309
  Transmission Date: 20170428
  Serious: Yes (Hospitalization, Other)
  Sender: FDA-Public Use
  Company Number: ES-GILEAD-2017-0259617

PATIENT
  Age: 52 Year
  Sex: Female

DRUGS (2)
  1. GENVOYA [Suspect]
     Active Substance: COBICISTAT\ELVITEGRAVIR\EMTRICITABINE\TENOFOVIR ALAFENAMIDE FUMARATE
     Indication: HIV INFECTION
     Route: 048
     Dates: start: 20160705, end: 201702
  2. SERETIDE [Interacting]
     Active Substance: FLUTICASONE PROPIONATE\SALMETEROL XINAFOATE
     Indication: CHRONIC OBSTRUCTIVE PULMONARY DISEASE
     Route: 055
     Dates: start: 20160722, end: 20170208

REACTIONS (3)
  - Cushing^s syndrome [Recovering/Resolving]
  - Drug interaction [Recovered/Resolved]
  - Medication monitoring error [Recovered/Resolved]

NARRATIVE: CASE EVENT DATE: 20160722
